FAERS Safety Report 6150860-1 (Version None)
Quarter: 2009Q2

REPORT INFORMATION
  Report Type: 
  Country: None (occurrence: None)
  Receive Date: 20090408
  Receipt Date: 20090326
  Transmission Date: 20091009
  Serious: Yes (Hospitalization, Disabling, Other)
  Sender: FDA-Public Use
  Company Number: 2009S1005495

PATIENT
  Sex: Female

DRUGS (2)
  1. DILANTIN [Suspect]
     Indication: CONVULSION
     Dosage: ORAL, ORAL
     Route: 048
     Dates: start: 20020101
  2. PHENYTOIN SODIUM [Suspect]
     Indication: CONVULSION
     Dosage: ORAL, ORAL
     Route: 048
     Dates: start: 20020101

REACTIONS (11)
  - ACTIVITIES OF DAILY LIVING IMPAIRED [None]
  - ACUTE GENERALISED EXANTHEMATOUS PUSTULOSIS [None]
  - ADVERSE DRUG REACTION [None]
  - ALOPECIA [None]
  - DRUG RASH WITH EOSINOPHILIA AND SYSTEMIC SYMPTOMS [None]
  - DRY SKIN [None]
  - ERYTHEMA MULTIFORME [None]
  - GAIT DISTURBANCE [None]
  - SCAR [None]
  - STEVENS-JOHNSON SYNDROME [None]
  - TOXIC EPIDERMAL NECROLYSIS [None]
